FAERS Safety Report 5281584-0 (Version None)
Quarter: 2007Q1

REPORT INFORMATION
  Report Type: 
  Country: None (occurrence: None)
  Receive Date: 20070330
  Receipt Date: 20070327
  Transmission Date: 20070707
  Serious: Yes (Other)
  Sender: FDA-Public Use
  Company Number: NSADSS2002038505

PATIENT
  Age: 70 Year
  Sex: Female

DRUGS (11)
  1. REMICADE [Suspect]
     Route: 041
  2. REMICADE [Suspect]
     Indication: RHEUMATOID ARTHRITIS
     Route: 041
  3. METHOTREXATE [Concomitant]
  4. FOLIC ACID [Concomitant]
  5. ALENDRONATE SODIUM [Concomitant]
  6. VITAMIN D [Concomitant]
  7. CALCIUM [Concomitant]
  8. ACETAMINOPHEN [Concomitant]
  9. LEFLUNOMIDE [Concomitant]
     Indication: RHEUMATOID ARTHRITIS
  10. URBASON [Concomitant]
     Dosage: 2 MG DAILY FOR SEVERAL YEARS
  11. ETIDRONATE DISODIUM [Concomitant]
     Indication: OSTEOPOROSIS

REACTIONS (1)
  - ERYTHEMA MULTIFORME [None]
